FAERS Safety Report 7564065-0 (Version None)
Quarter: 2011Q2

REPORT INFORMATION
  Report Type: 
  Country: None (occurrence: None)
  Receive Date: 20110622
  Receipt Date: 20110615
  Transmission Date: 20111010
  Serious: Yes (Other)
  Sender: FDA-Public Use
  Company Number: US-ABBOTT-11P-163-0732527-00

PATIENT
  Sex: Female

DRUGS (5)
  1. LYRICA [Suspect]
     Indication: RESTLESS LEGS SYNDROME
  2. CLARITHROMYCIN [Suspect]
     Indication: LUNG INFECTION
  3. FOSAMAX [Suspect]
     Indication: PRODUCT USED FOR UNKNOWN INDICATION
  4. PREMPRO [Concomitant]
     Indication: PRODUCT USED FOR UNKNOWN INDICATION
  5. BONIVA [Suspect]
     Indication: PRODUCT USED FOR UNKNOWN INDICATION

REACTIONS (6)
  - LUNG INFECTION [None]
  - DRUG DOSE OMISSION [None]
  - PULMONARY HAEMORRHAGE [None]
  - DYSPNOEA [None]
  - BLOOD PRESSURE DECREASED [None]
  - MALAISE [None]
